FAERS Safety Report 14768509 (Version 1)
Quarter: 2018Q2

REPORT INFORMATION
  Report Type: Spontaneous
  Country: US (occurrence: US)
  Receive Date: 20180417
  Receipt Date: 20180417
  Transmission Date: 20180711
  Serious: No
  Sender: FDA-Public Use
  Company Number: US-009507513-1804USA005507

PATIENT
  Sex: Female
  Weight: 121.3 kg

DRUGS (1)
  1. NEXPLANON [Suspect]
     Active Substance: ETONOGESTREL
     Dosage: 1 IMPLANT, UNK
     Route: 059
     Dates: start: 20141113, end: 20180123

REACTIONS (5)
  - Implant site pain [Unknown]
  - Complication associated with device [Recovered/Resolved]
  - Pain in extremity [Unknown]
  - Incorrect drug administration duration [Unknown]
  - Implant site swelling [Unknown]

NARRATIVE: CASE EVENT DATE: 20141113
